FAERS Safety Report 10504157 (Version 2)
Quarter: 2014Q4

REPORT INFORMATION
  Report Type: Spontaneous
  Country: US (occurrence: US)
  Receive Date: 20141008
  Receipt Date: 20141008
  Transmission Date: 20150528
  Serious: No
  Sender: FDA-Public Use
  Company Number: US-BEH-2014040753

PATIENT
  Age: 10 Year
  Sex: Male
  Weight: 42 kg

DRUGS (8)
  1. PRIVIGEN [Suspect]
     Active Substance: HUMAN IMMUNOGLOBULIN G
     Indication: IMMUNODEFICIENCY COMMON VARIABLE
     Dosage: 10 GM VIAL
     Route: 042
  2. LIDOCAINE PRILOCAINE [Concomitant]
  3. SODIUM CHLORIDE. [Concomitant]
     Active Substance: SODIUM CHLORIDE
  4. PRIVIGEN [Suspect]
     Active Substance: HUMAN IMMUNOGLOBULIN G
     Dosage: 10 GM VIAL;25 ML/HR FOR 15 MIN., 35ML/HR FOR 15 MIN., 50 ML/HR FOR 30 MIN, 75 ML/HR
     Route: 042
  5. EPIPEN JR [Concomitant]
     Active Substance: EPINEPHRINE
  6. ZYRTEC [Concomitant]
     Active Substance: CETIRIZINE HYDROCHLORIDE
  7. IBUPROFEN. [Concomitant]
     Active Substance: IBUPROFEN
  8. DIPHENHYDRAMINE [Concomitant]
     Active Substance: DIPHENHYDRAMINE

REACTIONS (2)
  - Migraine [Unknown]
  - Sinusitis [Unknown]

NARRATIVE: CASE EVENT DATE: 20140308
